FAERS Safety Report 12521719 (Version 1)
Quarter: 2016Q3

REPORT INFORMATION
  Report Type: Spontaneous
  Country: BE (occurrence: BE)
  Receive Date: 20160701
  Receipt Date: 20160701
  Transmission Date: 20161109
  Serious: Yes (Other)
  Sender: FDA-Public Use
  Company Number: BE-VERNALIS THERAPEUTICS, INC.-2016VRN00038

PATIENT
  Age: 2 Year

DRUGS (1)
  1. AMOXICILLIN CLAVULANATE [Suspect]
     Active Substance: AMOXICILLIN\CLAVULANIC ACID
     Route: 042

REACTIONS (3)
  - Poisoning [Recovered/Resolved]
  - Incorrect route of drug administration [Recovered/Resolved]
  - Shock [Recovered/Resolved]
